FAERS Safety Report 15518547 (Version 11)
Quarter: 2019Q2

REPORT INFORMATION
  Report Type: Report from Study
  Country: US (occurrence: US)
  Receive Date: 20181017
  Receipt Date: 20190611
  Transmission Date: 20190711
  Serious: Yes (Hospitalization)
  Sender: FDA-Public Use
  Company Number: US-ACTELION-A-US2018-176729

PATIENT
  Age: 61 Year
  Sex: Female
  Weight: 92.06 kg

DRUGS (5)
  1. ADEMPAS [Suspect]
     Active Substance: RIOCIGUAT
     Indication: PRODUCT USED FOR UNKNOWN INDICATION
     Dosage: 2.5 MG, TID
     Route: 065
     Dates: start: 201811
  2. ADEMPAS [Suspect]
     Active Substance: RIOCIGUAT
     Dosage: 1 MG, UNK
     Route: 065
  3. OPSUMIT [Suspect]
     Active Substance: MACITENTAN
     Indication: PULMONARY ARTERIAL HYPERTENSION
     Dosage: 10 MG, QD
     Route: 048
     Dates: start: 20180720
  4. ADEMPAS [Suspect]
     Active Substance: RIOCIGUAT
     Route: 065
  5. COUMADIN [Concomitant]
     Active Substance: WARFARIN SODIUM

REACTIONS (31)
  - Condition aggravated [Unknown]
  - Dyspnoea at rest [Not Recovered/Not Resolved]
  - Cardiac disorder [Unknown]
  - Nasal congestion [Unknown]
  - Presyncope [Unknown]
  - Immune system disorder [Unknown]
  - Vision blurred [Unknown]
  - Viral infection [Unknown]
  - Pyrexia [Not Recovered/Not Resolved]
  - Epistaxis [Unknown]
  - Cough [Unknown]
  - Dehydration [Unknown]
  - Palpitations [Unknown]
  - Hypotension [Unknown]
  - Peripheral swelling [Unknown]
  - Echocardiogram abnormal [Unknown]
  - Pulmonary arterial hypertension [Not Recovered/Not Resolved]
  - Heart rate increased [Unknown]
  - Dyspnoea exertional [Not Recovered/Not Resolved]
  - Anxiety [Unknown]
  - Headache [Unknown]
  - Sickle cell anaemia with crisis [Unknown]
  - Upper respiratory tract congestion [Unknown]
  - Cardiac flutter [Unknown]
  - Depression [Recovering/Resolving]
  - Paraesthesia [Unknown]
  - Dyspnoea [Not Recovered/Not Resolved]
  - Dizziness [Unknown]
  - Productive cough [Not Recovered/Not Resolved]
  - Secretion discharge [Unknown]
  - Emotional disorder [Unknown]

NARRATIVE: CASE EVENT DATE: 20181012
